FAERS Safety Report 7629094-7 (Version None)
Quarter: 2011Q3

REPORT INFORMATION
  Report Type: 
  Country: None (occurrence: None)
  Receive Date: 20110722
  Receipt Date: 20110722
  Transmission Date: 20111222
  Serious: Yes (Death)
  Sender: FDA-Public Use
  Company Number: None

PATIENT
  Age: 82 Year
  Sex: Male
  Weight: 58.967 kg

DRUGS (1)
  1. HUMIRA [Suspect]
     Indication: RHEUMATOID ARTHRITIS
     Dosage: 40 MG
     Route: 058
     Dates: start: 20100801, end: 20110701

REACTIONS (10)
  - NAUSEA [None]
  - ARTHRALGIA [None]
  - WEIGHT DECREASED [None]
  - PYREXIA [None]
  - LIPOATROPHY [None]
  - MUSCLE ATROPHY [None]
  - DECREASED APPETITE [None]
  - SYNCOPE [None]
  - DIPLOPIA [None]
  - FATIGUE [None]
